FAERS Safety Report 6697569-3 (Version None)
Quarter: 2010Q2

REPORT INFORMATION
  Report Type: 
  Country: None (occurrence: None)
  Receive Date: 20100426
  Receipt Date: 20090505
  Transmission Date: 20101027
  Serious: No
  Sender: FDA-Public Use
  Company Number: US-ABBOTT-09P-163-0571694-00

PATIENT
  Sex: Female
  Weight: 81.72 kg

DRUGS (1)
  1. AZMACORT [Suspect]
     Indication: ASTHMA PROPHYLAXIS
     Dosage: NOT REPORTED
     Dates: start: 20081101

REACTIONS (2)
  - DRUG DOSE OMISSION [None]
  - NASOPHARYNGITIS [None]
